FAERS Safety Report 14875073 (Version 3)
Quarter: 2018Q3

REPORT INFORMATION
  Report Type: Spontaneous
  Country: US (occurrence: US)
  Receive Date: 20180510
  Receipt Date: 20180803
  Transmission Date: 20181010
  Serious: Yes (Hospitalization, Other)
  Sender: FDA-Public Use
  Company Number: US-SAOL THERAPEUTICS-2018SAO00706

PATIENT
  Age: 10 Year
  Sex: Female
  Weight: 33.56 kg

DRUGS (23)
  1. LIORESAL [Suspect]
     Active Substance: BACLOFEN
     Indication: QUADRIPLEGIA
  2. MYCELEX?7 [Concomitant]
     Dosage: UNK, 2X/DAY
     Route: 061
  3. CHRONULAC, ENULOSE [Concomitant]
     Dosage: 10 G, UNK
     Route: 048
  4. ZOLOFT [Concomitant]
     Active Substance: SERTRALINE HYDROCHLORIDE
     Dosage: 20 MG, UNK
     Route: 048
  5. ROBINUL [Concomitant]
     Active Substance: GLYCOPYRROLATE
     Dosage: 1 MG, 3X/DAY
     Route: 048
  6. MIRALAX [Concomitant]
     Active Substance: POLYETHYLENE GLYCOL 3350
     Dosage: 17 G, 1X/DAY
  7. PERIACTIN [Concomitant]
     Active Substance: CYPROHEPTADINE HYDROCHLORIDE
     Dosage: 4 MG, 1X/DAY
     Route: 048
  8. MAXALT?MLT [Concomitant]
     Active Substance: RIZATRIPTAN BENZOATE
     Dosage: 5 MG, AS NEEDED
     Route: 048
  9. BACTROBAN [Concomitant]
     Active Substance: MUPIROCIN\MUPIROCIN CALCIUM
     Dosage: UNK, 3X/DAY
     Route: 061
  10. HYDROCODONE?ACETAMINOPHEN [Concomitant]
     Active Substance: ACETAMINOPHEN\HYDROCODONE
     Dosage: UNK
     Route: 048
  11. LIORESAL [Suspect]
     Active Substance: BACLOFEN
     Indication: MUSCLE SPASTICITY
     Dosage: 100 ?G, \DAY
     Route: 037
     Dates: start: 20180502, end: 20180502
  12. LIORESAL [Suspect]
     Active Substance: BACLOFEN
     Dosage: 110 ?G, \DAY
     Route: 037
     Dates: start: 20180502
  13. BENADRYL [Concomitant]
     Active Substance: DIPHENHYDRAMINE HYDROCHLORIDE
     Dosage: 25 MG, AS NEEDED
     Route: 048
  14. GLYCERIN, CHILD [Concomitant]
  15. IBUPROFEN. [Concomitant]
     Active Substance: IBUPROFEN
     Dosage: UNK, AS NEEDED
     Route: 048
  16. PRILOSEC [Concomitant]
     Active Substance: OMEPRAZOLE MAGNESIUM
     Dosage: 15 MG, 2X/DAY
     Route: 048
  17. MAALOX ANTACID [Concomitant]
     Active Substance: ALUMINUM HYDROXIDE\DIMETHICONE\MAGNESIUM HYDROXIDE
     Dosage: 15 ML, AS NEEDED
     Route: 048
  18. EMLA [Concomitant]
     Active Substance: LIDOCAINE\PRILOCAINE
     Dosage: UNK, AS DIRECTED
     Route: 061
  19. CONSTULOSE [Concomitant]
     Active Substance: LACTULOSE
     Dosage: 10 ML, 2X/DAY
     Route: 048
  20. LIORESAL [Suspect]
     Active Substance: BACLOFEN
     Indication: MUSCLE SPASTICITY
     Dosage: 113 ?G, \DAY
     Route: 037
  21. LIORESAL [Concomitant]
     Active Substance: BACLOFEN
     Indication: MUSCLE SPASMS
     Dosage: 5 MG, 3X/DAY
     Route: 048
  22. LIORESAL [Suspect]
     Active Substance: BACLOFEN
     Indication: QUADRIPLEGIA
     Dosage: 99.9 ?G, \DAY
     Route: 037
     Dates: start: 20180502, end: 20180502
  23. VALIUM [Concomitant]
     Active Substance: DIAZEPAM
     Dosage: 2 ML, AS NEEDED
     Route: 048

REACTIONS (11)
  - Irritability [Unknown]
  - Insomnia [Recovering/Resolving]
  - Constipation [Unknown]
  - Agitation [Recovered/Resolved]
  - Medical device site reaction [Unknown]
  - Atrophy [Unknown]
  - Swelling [Recovered/Resolved]
  - Bone formation increased [Unknown]
  - Implant site pain [Unknown]
  - Muscle spasms [Unknown]
  - Oral administration complication [Unknown]

NARRATIVE: CASE EVENT DATE: 20180501
